FAERS Safety Report 4373323-2 (Version None)
Quarter: 2004Q2

REPORT INFORMATION
  Report Type: 
  Country: None (occurrence: None)
  Receive Date: 20040603
  Receipt Date: 20040524
  Transmission Date: 20050107
  Serious: Yes (Death)
  Sender: FDA-Public Use
  Company Number: 206417

PATIENT
  Age: 72 Year
  Sex: Female

DRUGS (16)
  1. AVASTIN [Suspect]
     Indication: COLON CANCER METASTATIC
     Dosage: 5 MG/KG, INTRAVENOUS
     Route: 042
     Dates: start: 20040317, end: 20040324
  2. FLUOROURACIL [Concomitant]
  3. LEUCOVORIN CALCIUM [Concomitant]
  4. LEXAPRO [Concomitant]
  5. PREMARIN [Concomitant]
  6. THYROID TAB [Concomitant]
  7. CELEBREX [Concomitant]
  8. LISINOPRIL [Concomitant]
  9. OMEPRAZOLE [Concomitant]
  10. LORTAB [Concomitant]
  11. FIORINAL [Concomitant]
  12. METAMUCIL (PSYLLIUM HUSK) [Concomitant]
  13. SENOKOT [Concomitant]
  14. ADVIL [Concomitant]
  15. CENTRUM SILVER (MULTIVITAMINS NOS, MINERALS NOS) SOLUTION FOR INJECTIO [Concomitant]
  16. OS-CAL (CALCIUM CARBONATE) [Concomitant]

REACTIONS (22)
  - ABDOMINAL PAIN [None]
  - BACTERAEMIA [None]
  - BLOOD ALBUMIN DECREASED [None]
  - BLOOD BILIRUBIN INCREASED [None]
  - BLOOD UREA INCREASED [None]
  - DEHYDRATION [None]
  - DYSPHAGIA [None]
  - FALL [None]
  - GASTROENTERITIS [None]
  - HAEMOGLOBIN INCREASED [None]
  - HYPOKALAEMIA [None]
  - HYPONATRAEMIA [None]
  - LOSS OF CONSCIOUSNESS [None]
  - MALNUTRITION [None]
  - METABOLIC DISORDER [None]
  - NEUTROPENIA [None]
  - PLATELET COUNT DECREASED [None]
  - PNEUMONIA ASPIRATION [None]
  - RESPIRATORY FAILURE [None]
  - SEDATION [None]
  - STOMATITIS [None]
  - SYNCOPE [None]
